FAERS Safety Report 11184588 (Version 1)
Quarter: 2015Q2

REPORT INFORMATION
  Report Type: Spontaneous
  Country: JP (occurrence: None)
  Receive Date: 20150610
  Receipt Date: 20150610
  Transmission Date: 20150821
  Serious: Yes (Hospitalization, Other)
  Sender: FDA-Public Use
  Company Number: SP09267

PATIENT
  Age: 91 Year
  Sex: Male

DRUGS (1)
  1. MOVIPREP [Suspect]
     Active Substance: ASCORBIC ACID\POLYETHYLENE GLYCOL 3350\POTASSIUM CHLORIDE\SODIUM ASCORBATE\SODIUM CHLORIDE\SODIUM SULFATE
     Indication: ENDOSCOPY LARGE BOWEL
     Route: 048
     Dates: start: 20150225, end: 20150225

REACTIONS (7)
  - Pyrexia [None]
  - Oxygen saturation decreased [None]
  - C-reactive protein increased [None]
  - Pneumonia aspiration [None]
  - White blood cell count increased [None]
  - Vomiting [None]
  - Chills [None]

NARRATIVE: CASE EVENT DATE: 20150225
